FAERS Safety Report 7472552-9 (Version None)
Quarter: 2011Q2

REPORT INFORMATION
  Report Type: 
  Country: None (occurrence: None)
  Receive Date: 20110511
  Receipt Date: 20101006
  Transmission Date: 20111010
  Serious: No
  Sender: FDA-Public Use
  Company Number: US-AMGEN-TCS437430

PATIENT
  Age: 38 Year
  Sex: Female

DRUGS (3)
  1. UNSPECIFIED STEROIDS [Suspect]
     Dosage: UNK UNK, UNK
  2. ENBREL [Suspect]
     Indication: PSORIATIC ARTHROPATHY
     Dosage: 50 MG, QWK
     Route: 058
     Dates: start: 20100809
  3. ENBREL [Suspect]
     Indication: PSORIASIS

REACTIONS (7)
  - PAIN IN EXTREMITY [None]
  - PAIN [None]
  - WEIGHT INCREASED [None]
  - STEROID THERAPY [None]
  - OEDEMA PERIPHERAL [None]
  - PSORIASIS [None]
  - BURNING SENSATION [None]
